FAERS Safety Report 5612217-9 (Version None)
Quarter: 2008Q1

REPORT INFORMATION
  Report Type: 
  Country: None (occurrence: None)
  Receive Date: 20080204
  Receipt Date: 20080125
  Transmission Date: 20080703
  Serious: Yes (Other)
  Sender: FDA-Public Use
  Company Number: JP-JNJFOC-20070904523

PATIENT
  Sex: Female
  Weight: 40 kg

DRUGS (9)
  1. REMICADE [Suspect]
     Indication: CROHN'S DISEASE
     Route: 042
  2. IMURAN [Suspect]
     Indication: CROHN'S DISEASE
     Route: 048
  3. PENTASA [Concomitant]
     Indication: CROHN'S DISEASE
     Route: 048
  4. GASTER D [Concomitant]
     Indication: DRUG USE FOR UNKNOWN INDICATION
     Route: 048
  5. CEFOTIAM HYDROCHLORIDE [Concomitant]
  6. CEFOZOPRAN HYDROCHLORIDE [Concomitant]
  7. CEFOZOPRAN HYDROCHLORIDE [Concomitant]
  8. CEFOZOPRAN HYDROCHLORIDE [Concomitant]
  9. MODACIN [Concomitant]

REACTIONS (6)
  - ALOPECIA [None]
  - ANAEMIA [None]
  - INTESTINAL OBSTRUCTION [None]
  - MALAISE [None]
  - PLATELET COUNT DECREASED [None]
  - WHITE BLOOD CELL COUNT DECREASED [None]
